FAERS Safety Report 13150629 (Version 2)
Quarter: 2017Q1

REPORT INFORMATION
  Report Type: Spontaneous
  Country: FR (occurrence: FR)
  Receive Date: 20170125
  Receipt Date: 20170207
  Transmission Date: 20170428
  Serious: Yes (Hospitalization)
  Sender: FDA-Public Use
  Company Number: FR-ACTELION-A-CH2017-148505

PATIENT
  Age: 63 Year
  Sex: Male
  Weight: 63 kg

DRUGS (13)
  1. COUMADINE [Concomitant]
     Active Substance: WARFARIN SODIUM
     Dosage: UNK
     Dates: start: 2014
  2. UPTRAVI [Suspect]
     Active Substance: SELEXIPAG
     Indication: PULMONARY ARTERIAL HYPERTENSION
     Dosage: UNK
     Route: 048
     Dates: start: 201608
  3. UPTRAVI [Suspect]
     Active Substance: SELEXIPAG
     Dosage: 1600 ?G, QD
     Route: 048
     Dates: start: 201608
  4. NITRIDERM [Concomitant]
     Active Substance: NITROGLYCERIN
  5. UPTRAVI [Suspect]
     Active Substance: SELEXIPAG
     Dosage: UNK
     Route: 048
     Dates: end: 20170106
  6. REVATIO [Suspect]
     Active Substance: SILDENAFIL CITRATE
     Indication: PULMONARY ARTERIAL HYPERTENSION
     Dosage: 20 MG, QD
     Route: 048
     Dates: start: 201404
  7. METFORMIN [Concomitant]
     Active Substance: METFORMIN HYDROCHLORIDE
     Dosage: UNK
     Dates: start: 201402
  8. RAMIPRIL. [Concomitant]
     Active Substance: RAMIPRIL
  9. LASILIX [Concomitant]
     Active Substance: FUROSEMIDE
     Dosage: UNK
     Dates: start: 201505
  10. ATORVASTATIN [Concomitant]
     Active Substance: ATORVASTATIN
     Dosage: UNK
     Dates: start: 2010
  11. INEXIUM [Concomitant]
     Active Substance: ESOMEPRAZOLE
     Dosage: UNK
     Dates: start: 2011
  12. TRACLEER [Suspect]
     Active Substance: BOSENTAN
     Indication: PULMONARY ARTERIAL HYPERTENSION
     Dosage: 250 MG, QD
     Route: 048
     Dates: start: 201411
  13. ASPEGIC [Concomitant]
     Active Substance: ASPIRIN DL-LYSINE
     Dosage: UNK
     Dates: start: 2011

REACTIONS (4)
  - Pulmonary arterial hypertension [Unknown]
  - Dyspnoea [Unknown]
  - Condition aggravated [Unknown]
  - Syncope [Unknown]

NARRATIVE: CASE EVENT DATE: 20160409
